FAERS Safety Report 13064126 (Version 1)
Quarter: 2016Q4

REPORT INFORMATION
  Report Type: Spontaneous
  Country: US (occurrence: US)
  Receive Date: 20161223
  Receipt Date: 20161223
  Transmission Date: 20170207
  Serious: Yes (Other)
  Sender: FDA-Public Use
  Company Number: None

PATIENT
  Age: 65 Year
  Sex: Female
  Weight: 69.75 kg

DRUGS (5)
  1. VALSARTAN 80 MG TABLET [Suspect]
     Active Substance: VALSARTAN
     Indication: PRODUCT USED FOR UNKNOWN INDICATION
     Dosage: ?          QUANTITY:1 TABLET(S);?
     Route: 048
  2. HCT [Concomitant]
     Active Substance: HYDROCHLOROTHIAZIDE
  3. ONE A DAY VITAMINS [Concomitant]
  4. PREMPRO [Concomitant]
     Active Substance: ESTROGENS, CONJUGATED\MEDROXYPROGESTERONE ACETATE
  5. DIOVAN [Concomitant]
     Active Substance: VALSARTAN

REACTIONS (5)
  - Palpitations [None]
  - Dizziness [None]
  - Cardiac flutter [None]
  - Wrong technique in product usage process [None]
  - Product substitution issue [None]

NARRATIVE: CASE EVENT DATE: 20161221
